FAERS Safety Report 19084802 (Version 2)
Quarter: 2021Q2

REPORT INFORMATION
  Report Type: Spontaneous
  Country: DE (occurrence: DE)
  Receive Date: 20210401
  Receipt Date: 20210506
  Transmission Date: 20210717
  Serious: Yes (Other)
  Sender: FDA-Public Use
  Company Number: DE-DSJP-DSE-2021-109611

PATIENT
  Age: 75 Year
  Sex: Male
  Weight: 98 kg

DRUGS (1)
  1. LIXIANA [Suspect]
     Active Substance: EDOXABAN TOSYLATE
     Indication: ATRIAL FLUTTER
     Dosage: 60 MG, QD
     Route: 048
     Dates: start: 20200514, end: 20210215

REACTIONS (2)
  - Cystitis haemorrhagic [Recovered/Resolved]
  - Bladder tamponade [Recovered/Resolved]

NARRATIVE: CASE EVENT DATE: 20210106
